FAERS Safety Report 8415305-7 (Version None)
Quarter: 2012Q2

REPORT INFORMATION
  Report Type: 
  Country: None (occurrence: None)
  Receive Date: 20120323
  Receipt Date: 20111207
  Transmission Date: 20120825
  Serious: Yes (Other)
  Sender: FDA-Public Use
  Company Number: 163-21880-11120957

PATIENT
  Age: 65 Year
  Sex: Female

DRUGS (4)
  1. REVLIMID [Suspect]
     Indication: MULTIPLE MYELOMA
     Dosage: 15 MG, 1 IN 1 D, PO 10 MG, 1 IN 1 D, PO 5 MG, DAILY X 21 DAYS, PO 5 MG, QOD X 14 DAYS, PO
     Route: 048
     Dates: start: 20110101
  2. REVLIMID [Suspect]
     Indication: MULTIPLE MYELOMA
     Dosage: 15 MG, 1 IN 1 D, PO 10 MG, 1 IN 1 D, PO 5 MG, DAILY X 21 DAYS, PO 5 MG, QOD X 14 DAYS, PO
     Route: 048
     Dates: start: 20101101
  3. REVLIMID [Suspect]
     Indication: MULTIPLE MYELOMA
     Dosage: 15 MG, 1 IN 1 D, PO 10 MG, 1 IN 1 D, PO 5 MG, DAILY X 21 DAYS, PO 5 MG, QOD X 14 DAYS, PO
     Route: 048
     Dates: start: 20110101
  4. REVLIMID [Suspect]
     Indication: MULTIPLE MYELOMA
     Dosage: 15 MG, 1 IN 1 D, PO 10 MG, 1 IN 1 D, PO 5 MG, DAILY X 21 DAYS, PO 5 MG, QOD X 14 DAYS, PO
     Route: 048
     Dates: start: 20110601

REACTIONS (1)
  - FULL BLOOD COUNT DECREASED [None]
